FAERS Safety Report 20861172 (Version 2)
Quarter: 2023Q1

REPORT INFORMATION
  Report Type: Spontaneous
  Country: US (occurrence: US)
  Receive Date: 20220523
  Receipt Date: 20230309
  Transmission Date: 20230418
  Serious: No
  Sender: FDA-Public Use
  Company Number: US-PFIZER INC-202200624738

PATIENT
  Age: 56 Year
  Sex: Female
  Weight: 61.23 kg

DRUGS (1)
  1. LIOTHYRONINE SODIUM [Suspect]
     Active Substance: LIOTHYRONINE SODIUM
     Dosage: 5 UG, 3X/DAY

REACTIONS (3)
  - Drug ineffective [Unknown]
  - Chest pain [Unknown]
  - Anxiety [Unknown]
